FAERS Safety Report 4607827-1 (Version None)
Quarter: 2005Q1

REPORT INFORMATION
  Report Type: 
  Country: None (occurrence: None)
  Receive Date: 20050310
  Receipt Date: 20050225
  Transmission Date: 20050727
  Serious: Yes (Hospitalization)
  Sender: FDA-Public Use
  Company Number: HQWYE433107JAN05

PATIENT
  Age: 49 Year
  Sex: Male

DRUGS (1)
  1. RAPAMUNE [Suspect]
     Indication: PROPHYLAXIS AGAINST TRANSPLANT REJECTION
     Dosage: 5 MG 1X PER 1 DAY; ORAL
     Route: 048
     Dates: start: 20030828

REACTIONS (6)
  - HAEMATURIA [None]
  - HYPOAESTHESIA [None]
  - MUSCLE ATROPHY [None]
  - PARAESTHESIA [None]
  - PERIPHERAL COLDNESS [None]
  - POOR PERIPHERAL CIRCULATION [None]
